FAERS Safety Report 16280077 (Version 1)
Quarter: 2019Q2

REPORT INFORMATION
  Report Type: Spontaneous
  Country: US (occurrence: US)
  Receive Date: 20190507
  Receipt Date: 20190507
  Transmission Date: 20190711
  Serious: No
  Sender: FDA-Public Use
  Company Number: US-GLENMARK PHARMACEUTICALS-2019GMK039618

PATIENT

DRUGS (3)
  1. GABAPENTIN TABLETS [Suspect]
     Active Substance: GABAPENTIN
     Dosage: UNK, UNK, HS; STOPPED TAKING IN THE MORNING AND STARTED AT NIGHT
     Route: 048
  2. GABAPENTIN TABLETS [Suspect]
     Active Substance: GABAPENTIN
     Dosage: UNK, BID (600 MG IN THE MORNING AND 300 MG AT NIGHT)
     Route: 048
     Dates: end: 20190129
  3. GABAPENTIN TABLETS [Suspect]
     Active Substance: GABAPENTIN
     Indication: BACK PAIN
     Dosage: 600 MG, BID
     Route: 048
     Dates: start: 20181211

REACTIONS (4)
  - Weight increased [Not Recovered/Not Resolved]
  - Dizziness [Recovered/Resolved]
  - Wrong technique in product usage process [Unknown]
  - Product use in unapproved indication [Unknown]

NARRATIVE: CASE EVENT DATE: 201812
